FAERS Safety Report 18022196 (Version 4)
Quarter: 2021Q4

REPORT INFORMATION
  Report Type: Report from Study
  Country: CA (occurrence: CA)
  Receive Date: 20200714
  Receipt Date: 20211102
  Transmission Date: 20220303
  Serious: Yes (Hospitalization)
  Sender: FDA-Public Use
  Company Number: CA-JNJFOC-20200631811

PATIENT
  Age: 62 Year
  Sex: Female
  Weight: 79 kg

DRUGS (2)
  1. REMICADE [Suspect]
     Active Substance: INFLIXIMAB
     Indication: Psoriasis
     Route: 042
     Dates: start: 20120606
  2. REMICADE [Suspect]
     Active Substance: INFLIXIMAB
     Route: 042
     Dates: start: 20170330

REACTIONS (5)
  - Renal impairment [Recovered/Resolved with Sequelae]
  - Arthritis [Unknown]
  - Hypotension [Unknown]
  - Clostridium difficile infection [Recovered/Resolved with Sequelae]
  - Abscess jaw [Recovered/Resolved]

NARRATIVE: CASE EVENT DATE: 20200401
